FAERS Safety Report 7597100-4 (Version None)
Quarter: 2011Q3

REPORT INFORMATION
  Report Type: 
  Country: None (occurrence: None)
  Receive Date: 20110708
  Receipt Date: 20110628
  Transmission Date: 20111222
  Serious: Yes (Hospitalization)
  Sender: FDA-Public Use
  Company Number: US-JNJFOC-20110700106

PATIENT
  Age: 87 Year
  Sex: Male
  Weight: 63.5 kg

DRUGS (2)
  1. TYLENOL-500 [Suspect]
     Route: 048
  2. TYLENOL-500 [Suspect]
     Indication: ARTHRALGIA
     Dosage: ^2 CAPLETS FOR 10 YEARS^
     Route: 048
     Dates: start: 20110613, end: 20110624

REACTIONS (3)
  - DIZZINESS [None]
  - NAUSEA [None]
  - FATIGUE [None]
